FAERS Safety Report 8395628-0 (Version None)
Quarter: 2012Q2

REPORT INFORMATION
  Report Type: 
  Country: None (occurrence: None)
  Receive Date: 20120530
  Receipt Date: 20111214
  Transmission Date: 20120825
  Serious: No
  Sender: FDA-Public Use
  Company Number: US-GLAXOSMITHKLINE-A0958167A

PATIENT
  Sex: Male

DRUGS (11)
  1. MAXALT [Concomitant]
  2. NORTRIPTYLINE HCL [Concomitant]
  3. SINGULAIR [Concomitant]
  4. SUMATRIPTAN [Concomitant]
  5. GABAPENTIN [Concomitant]
  6. BACLOFEN [Concomitant]
  7. VENTOLIN [Suspect]
     Indication: PRODUCT USED FOR UNKNOWN INDICATION
     Dosage: 2PUFF FOUR TIMES PER DAY
     Route: 055
  8. PANTOPRAZOLE [Concomitant]
  9. HYDROXYZINE [Concomitant]
  10. FIORINAL [Concomitant]
  11. VICODIN [Concomitant]

REACTIONS (2)
  - DRUG INEFFECTIVE [None]
  - PRODUCT QUALITY ISSUE [None]
